FAERS Safety Report 5225000-3 (Version None)
Quarter: 2007Q1

REPORT INFORMATION
  Report Type: 
  Country: None (occurrence: None)
  Receive Date: 20070126
  Receipt Date: 20070115
  Transmission Date: 20070707
  Serious: Yes (Hospitalization)
  Sender: FDA-Public Use
  Company Number: HQWYE777318JAN07

PATIENT
  Age: 30 Year
  Sex: Female

DRUGS (2)
  1. EFFEXOR [Suspect]
     Dosage: OVERDOSE AMOUNT 500 MG ORAL
     Route: 048
  2. ZOPICLONE (ZOPICLONE) [Suspect]
     Dosage: OVERDOSE AMOUNT 10 TAB ORAL
     Route: 048
     Dates: start: 20050601, end: 20050601

REACTIONS (3)
  - BRADYPNOEA [None]
  - MYDRIASIS [None]
  - OVERDOSE [None]
